FAERS Safety Report 15435004 (Version 1)
Quarter: 2018Q3

REPORT INFORMATION
  Report Type: Spontaneous
  Country: US (occurrence: US)
  Receive Date: 20180924
  Receipt Date: 20180924
  Transmission Date: 20181010
  Serious: Yes (Other)
  Sender: FDA-Public Use
  Company Number: None

PATIENT
  Age: 48 Year
  Sex: Female
  Weight: 62.1 kg

DRUGS (6)
  1. ZYRTEC [Concomitant]
     Active Substance: CETIRIZINE HYDROCHLORIDE
  2. FLONASE [Concomitant]
     Active Substance: FLUTICASONE PROPIONATE
  3. CLARITIN [Concomitant]
     Active Substance: LORATADINE
  4. TYLENOL [Concomitant]
     Active Substance: ACETAMINOPHEN
  5. DOXYCYCLINE MONO [Suspect]
     Active Substance: DOXYCYCLINE
     Indication: EAR DISCOMFORT
     Dosage: ?          QUANTITY:1 TABLET(S);?
     Route: 048
     Dates: start: 20180914, end: 20180918
  6. DOXYCYCLINE MONO [Suspect]
     Active Substance: DOXYCYCLINE
     Indication: MIDDLE EAR EFFUSION
     Dosage: ?          QUANTITY:1 TABLET(S);?
     Route: 048
     Dates: start: 20180914, end: 20180918

REACTIONS (2)
  - Back pain [None]
  - Faeces discoloured [None]

NARRATIVE: CASE EVENT DATE: 20180916
